FAERS Safety Report 4317308-0 (Version None)
Quarter: 2004Q1

REPORT INFORMATION
  Report Type: 
  Country: None (occurrence: None)
  Receive Date: 20040315
  Receipt Date: 20040315
  Transmission Date: 20041129
  Serious: Yes (Life-Threatening)
  Sender: FDA-Public Use
  Company Number: None

PATIENT
  Age: 49 Year
  Sex: Female
  Weight: 48.6 kg

DRUGS (2)
  1. MIDOZOLAM [Suspect]
     Indication: SEDATION
  2. OMNIPAQUE 350 [Suspect]
     Dosage: 350 MG I / 150 ML

REACTIONS (1)
  - CARDIO-RESPIRATORY ARREST [None]
